APPROVED DRUG PRODUCT: ESTRADIOL VALERATE
Active Ingredient: ESTRADIOL VALERATE
Strength: 40MG/ML
Dosage Form/Route: INJECTABLE;INJECTION
Application: A083714 | Product #001
Applicant: DR REDDYS LABORATORIES LTD
Approved: Approved Prior to Jan 1, 1982 | RLD: No | RS: No | Type: DISCN